FAERS Safety Report 7296314-0 (Version None)
Quarter: 2011Q1

REPORT INFORMATION
  Report Type: 
  Country: None (occurrence: None)
  Receive Date: 20110211
  Receipt Date: 20110211
  Transmission Date: 20110831
  Serious: Yes (Other)
  Sender: FDA-Public Use
  Company Number: None

PATIENT
  Sex: Female
  Weight: 63.5036 kg

DRUGS (1)
  1. SULFAMETHOXAZOLE AND TRIMETHOPRIM DOUBLE STRENGTH [Suspect]
     Indication: ARTHROPOD BITE
     Dosage: 1 TABLET 2 DAILY ORAL
     Route: 048
     Dates: start: 20110117, end: 20110125

REACTIONS (4)
  - DYSGEUSIA [None]
  - RASH GENERALISED [None]
  - PYREXIA [None]
  - DIARRHOEA [None]
